FAERS Safety Report 7680052-6 (Version None)
Quarter: 2011Q3

REPORT INFORMATION
  Report Type: 
  Country: None (occurrence: None)
  Receive Date: 20110805
  Receipt Date: 20110728
  Transmission Date: 20111222
  Serious: Yes (Hospitalization)
  Sender: FDA-Public Use
  Company Number: WAES 1107USA03734

PATIENT
  Age: 15 Year
  Sex: Female

DRUGS (9)
  1. LOSARTAN POTASSIUM [Suspect]
     Indication: MARFAN'S SYNDROME
     Dosage: 25 MG/DAILY/PO
     Route: 048
     Dates: start: 20080807, end: 20110616
  2. DEPO-PROVERA [Suspect]
     Indication: PRODUCT USED FOR UNKNOWN INDICATION
  3. LITHOBID [Concomitant]
  4. TYLENOL-500 [Concomitant]
  5. SYNTHROID [Concomitant]
  6. IBUPROFEN [Concomitant]
  7. ABILIFY [Concomitant]
  8. MIRALAX [Concomitant]
  9. MIRTAZAPINE [Concomitant]

REACTIONS (3)
  - MENORRHAGIA [None]
  - IRON DEFICIENCY ANAEMIA [None]
  - CONDITION AGGRAVATED [None]
